FAERS Safety Report 12631881 (Version 3)
Quarter: 2016Q3

REPORT INFORMATION
  Report Type: Spontaneous
  Country: US (occurrence: US)
  Receive Date: 20160808
  Receipt Date: 20160824
  Transmission Date: 20161109
  Serious: No
  Sender: FDA-Public Use
  Company Number: US-BEH-2016061321

PATIENT
  Age: 38 Year
  Sex: Female
  Weight: 53.53 kg

DRUGS (18)
  1. TYLENOL [Concomitant]
     Active Substance: ACETAMINOPHEN
  2. MULTIVITAMINS [Concomitant]
     Active Substance: VITAMINS
  3. PRISTIQ EXTENDED-RELEASE [Concomitant]
     Active Substance: DESVENLAFAXINE SUCCINATE
  4. HIZENTRA [Suspect]
     Active Substance: HUMAN IMMUNOGLOBULIN G
     Indication: STATUS ASTHMATICUS
  5. ASPIRIN. [Concomitant]
     Active Substance: ASPIRIN
  6. ZYRTEC [Concomitant]
     Active Substance: CETIRIZINE HYDROCHLORIDE
  7. ALPRAZOLAM. [Concomitant]
     Active Substance: ALPRAZOLAM
  8. SINGULAIR [Concomitant]
     Active Substance: MONTELUKAST SODIUM
  9. DEXILANT [Concomitant]
     Active Substance: DEXLANSOPRAZOLE
  10. HIZENTRA [Suspect]
     Active Substance: HUMAN IMMUNOGLOBULIN G
     Indication: DIAPHRAGMATIC HERNIA
     Dosage: 8 G, QW
     Route: 058
     Dates: start: 2010
  11. LIDOCAINE/PRILOCAINE [Concomitant]
     Active Substance: LIDOCAINE\PRILOCAINE
  12. EPIPEN [Concomitant]
     Active Substance: EPINEPHRINE
  13. BENTYL [Concomitant]
     Active Substance: DICYCLOMINE HYDROCHLORIDE
  14. HIZENTRA [Suspect]
     Active Substance: HUMAN IMMUNOGLOBULIN G
     Indication: IMMUNODEFICIENCY COMMON VARIABLE
  15. CARAFATE [Concomitant]
     Active Substance: SUCRALFATE
  16. NAPROXEN. [Concomitant]
     Active Substance: NAPROXEN
  17. CLARITIN [Concomitant]
     Active Substance: LORATADINE
  18. CYANOCOBALAMIN. [Concomitant]
     Active Substance: CYANOCOBALAMIN

REACTIONS (2)
  - Ear infection [Recovered/Resolved]
  - Upper respiratory tract infection [Recovered/Resolved]

NARRATIVE: CASE EVENT DATE: 201601
